FAERS Safety Report 16393743 (Version 1)
Quarter: 2019Q2

REPORT INFORMATION
  Report Type: Spontaneous
  Country: US (occurrence: US)
  Receive Date: 20190430
  Receipt Date: 20190430
  Transmission Date: 20190711
  Serious: No
  Sender: FDA-Public Use
  Company Number: None

PATIENT
  Sex: Female

DRUGS (1)
  1. MYCOPHENOLATE 500MG ROXANE [Suspect]
     Active Substance: MYCOPHENOLATE MOFETIL
     Indication: POST PROCEDURAL COMPLICATION
     Route: 048
     Dates: start: 20180910

REACTIONS (4)
  - Mouth haemorrhage [None]
  - Epistaxis [None]
  - Palpitations [None]
  - Chills [None]
